FAERS Safety Report 19381322 (Version 2)
Quarter: 2021Q2

REPORT INFORMATION
  Report Type: Spontaneous
  Country: SE (occurrence: SE)
  Receive Date: 20210607
  Receipt Date: 20210614
  Transmission Date: 20210717
  Serious: Yes (Death)
  Sender: FDA-Public Use
  Company Number: SE-ACCORD-227285

PATIENT
  Age: 76 Year
  Sex: Male
  Weight: 80 kg

DRUGS (16)
  1. GEMCITABINE/GEMCITABINE HYDROCHLORIDE [Suspect]
     Active Substance: GEMCITABINE\GEMCITABINE HYDROCHLORIDE
     Indication: PRODUCT USED FOR UNKNOWN INDICATION
     Dosage: 1824 MG, 1000 MG/M2
     Route: 042
     Dates: start: 20210303, end: 20210303
  2. ACETYLSALICYLIC ACID TEVA [Concomitant]
     Route: 048
     Dates: start: 20200522
  3. ESOMEPRAZOLE/ESOMEPRAZOLE MAGNESIUM/ESOMEPRAZOLE SODIUM [Concomitant]
     Active Substance: ESOMEPRAZOLE
     Dosage: GASTRO?RESISTANT CAPSULE, HARD
     Route: 048
     Dates: start: 20200520
  4. COMIRNATY [Suspect]
     Active Substance: TOZINAMERAN
     Indication: PRODUCT USED FOR UNKNOWN INDICATION
     Dosage: DOS 2
     Dates: start: 20210303
  5. SERTRALINE [Concomitant]
     Active Substance: SERTRALINE HYDROCHLORIDE
     Route: 048
     Dates: start: 20200522
  6. ONDANSETRON AUROBINDO [Concomitant]
     Active Substance: ONDANSETRON HYDROCHLORIDE
     Dosage: 8 MG 1 IN THE MORNING DAY 1 OF CYTOSTATIC TREATMENT
     Route: 048
     Dates: start: 20210127
  7. GEMCITABINE/GEMCITABINE HYDROCHLORIDE [Suspect]
     Active Substance: GEMCITABINE\GEMCITABINE HYDROCHLORIDE
     Indication: PANCREATIC CARCINOMA METASTATIC
     Dosage: 1824 MG, 1000 MG/M2
     Route: 042
     Dates: start: 20210310, end: 20210310
  8. ATORBIR [Concomitant]
     Active Substance: ATORVASTATIN
     Route: 048
     Dates: start: 20200522
  9. INSUMAN BASAL SOLOSTAR [Concomitant]
     Active Substance: INSULIN HUMAN
     Dosage: 0+28+0+8
     Route: 058
     Dates: start: 20200506
  10. FURIX [Concomitant]
     Route: 048
     Dates: start: 20200522
  11. STESOLID [Concomitant]
     Active Substance: DIAZEPAM
     Dosage: 1 TABLET AS REQUIRED FOR THE NIGHT
     Route: 048
     Dates: start: 20210127
  12. ALLOPURINOL NORDIC [Concomitant]
     Route: 048
     Dates: start: 20200506
  13. BISOPROLOL [Concomitant]
     Active Substance: BISOPROLOL
     Route: 048
     Dates: start: 20200313
  14. BETAMETHASONE ALTERNOVA [Concomitant]
     Dosage: 8 TABLETS ON DAY 1 OF CYSTOSTATIC TREATMENT
     Route: 048
     Dates: start: 20210127
  15. GEMCITABINE/GEMCITABINE HYDROCHLORIDE [Suspect]
     Active Substance: GEMCITABINE\GEMCITABINE HYDROCHLORIDE
     Indication: PRODUCT USED FOR UNKNOWN INDICATION
     Dosage: 1824 MG, 1000 MG/M2
     Route: 042
     Dates: start: 20210217
  16. GEMCITABINE/GEMCITABINE HYDROCHLORIDE [Suspect]
     Active Substance: GEMCITABINE\GEMCITABINE HYDROCHLORIDE
     Indication: PRODUCT USED FOR UNKNOWN INDICATION
     Dosage: 1824 MG, 1000 MG/M2
     Route: 042
     Dates: start: 20210203, end: 20210203

REACTIONS (1)
  - Thrombocytopenia [Fatal]

NARRATIVE: CASE EVENT DATE: 202103
